FAERS Safety Report 17167322 (Version 2)
Quarter: 2020Q1

REPORT INFORMATION
  Report Type: Spontaneous
  Country: US (occurrence: US)
  Receive Date: 20191217
  Receipt Date: 20200319
  Transmission Date: 20200409
  Serious: No
  Sender: FDA-Public Use
  Company Number: US-BIOGEN-2013BI039677

PATIENT
  Sex: Female

DRUGS (3)
  1. TYSABRI [Suspect]
     Active Substance: NATALIZUMAB
     Route: 065
     Dates: start: 20061025, end: 20110411
  2. TYSABRI [Suspect]
     Active Substance: NATALIZUMAB
     Indication: MULTIPLE SCLEROSIS
     Route: 042
     Dates: start: 20061025, end: 20101025
  3. TYSABRI [Suspect]
     Active Substance: NATALIZUMAB
     Route: 042
     Dates: start: 20110523, end: 20190221

REACTIONS (6)
  - Visual impairment [Unknown]
  - Multiple sclerosis [Unknown]
  - Optic neuritis [Unknown]
  - Memory impairment [Unknown]
  - Gait disturbance [Unknown]
  - Intervertebral disc degeneration [Unknown]
